FAERS Safety Report 23860246 (Version 2)
Quarter: 2024Q2

REPORT INFORMATION
  Report Type: Spontaneous
  Country: US (occurrence: US)
  Receive Date: 20240515
  Receipt Date: 20240610
  Transmission Date: 20240716
  Serious: No
  Sender: FDA-Public Use
  Company Number: US-BAUSCHBL-2024BNL026830

PATIENT
  Sex: Female

DRUGS (2)
  1. ALAWAY [Suspect]
     Active Substance: KETOTIFEN FUMARATE
     Indication: Dry eye
     Route: 047
     Dates: end: 20240508
  2. ALAWAY [Suspect]
     Active Substance: KETOTIFEN FUMARATE
     Indication: Product use in unapproved indication

REACTIONS (3)
  - Eye pain [Recovered/Resolved]
  - Product use in unapproved indication [Unknown]
  - Inappropriate schedule of product administration [Unknown]

NARRATIVE: CASE EVENT DATE: 20240501
